FAERS Safety Report 7508801-8 (Version None)
Quarter: 2011Q2

REPORT INFORMATION
  Report Type: 
  Country: None (occurrence: None)
  Receive Date: 20110527
  Receipt Date: 20110317
  Transmission Date: 20111010
  Serious: No
  Sender: FDA-Public Use
  Company Number: A0919302A

PATIENT
  Sex: Female

DRUGS (1)
  1. VENTOLIN [Suspect]
     Dosage: 90MCG UNKNOWN
     Route: 065

REACTIONS (2)
  - DYSPNOEA [None]
  - CHEST DISCOMFORT [None]
